FAERS Safety Report 8121075-2 (Version None)
Quarter: 2012Q1

REPORT INFORMATION
  Report Type: 
  Country: None (occurrence: None)
  Receive Date: 20120208
  Receipt Date: 20120130
  Transmission Date: 20120608
  Serious: Yes (Other)
  Sender: FDA-Public Use
  Company Number: US-JNJFOC-20111110213

PATIENT
  Sex: Female

DRUGS (15)
  1. REMICADE [Suspect]
     Indication: SPONDYLOARTHROPATHY
     Dosage: 5 MG/KG
     Route: 042
     Dates: start: 20111104, end: 20111104
  2. PURINETHOL [Concomitant]
     Indication: COLITIS ULCERATIVE
     Route: 065
  3. CANASA [Concomitant]
     Indication: COLITIS ULCERATIVE
     Route: 065
  4. ZOCOR [Concomitant]
     Route: 065
  5. REMICADE [Suspect]
     Indication: ANKYLOSING SPONDYLITIS
     Dosage: 5 MG/KG
     Route: 042
     Dates: start: 20111104, end: 20111104
  6. SPIRONOLACTONE [Concomitant]
     Indication: HYPERTENSION
     Route: 065
  7. PRILOSEC [Concomitant]
     Route: 065
  8. ROWASA [Concomitant]
     Indication: COLITIS ULCERATIVE
     Route: 065
  9. ACETYLSALICYLIC ACID SRT [Concomitant]
     Route: 065
  10. PREDNISONE [Concomitant]
     Route: 065
  11. HYDROCHLOROTHIAZIDE [Concomitant]
     Indication: HYPERTENSION
     Route: 065
  12. DIOVAN [Concomitant]
     Route: 065
  13. UROCIT-K [Concomitant]
     Route: 065
  14. GLUCOPHAGE [Concomitant]
     Indication: DIABETES MELLITUS
     Route: 065
  15. EFFEXOR [Concomitant]
     Route: 065

REACTIONS (4)
  - PARAESTHESIA ORAL [None]
  - SWOLLEN TONGUE [None]
  - ORAL PAIN [None]
  - GLOSSODYNIA [None]
